FAERS Safety Report 8230615-4 (Version None)
Quarter: 2012Q1

REPORT INFORMATION
  Report Type: 
  Country: None (occurrence: None)
  Receive Date: 20120321
  Receipt Date: 20120309
  Transmission Date: 20120608
  Serious: Yes (Death, Hospitalization, Other)
  Sender: FDA-Public Use
  Company Number: 2011P1012427

PATIENT
  Age: 93 Year
  Sex: Female

DRUGS (3)
  1. FENTANYL [Suspect]
     Indication: AGITATION
     Dosage: 50 UG;IV ; 25 UG;IV ; IV
     Route: 042
     Dates: start: 20110613, end: 20110613
  2. FENTANYL [Suspect]
     Indication: AGITATION
     Dosage: 50 UG;IV ; 25 UG;IV ; IV
     Route: 042
     Dates: start: 20110613, end: 20110613
  3. FENTANYL [Suspect]
     Indication: AGITATION
     Dosage: 50 UG;IV ; 25 UG;IV ; IV
     Route: 042
     Dates: end: 20110617

REACTIONS (18)
  - BODY TEMPERATURE INCREASED [None]
  - CONVULSION [None]
  - PUPIL FIXED [None]
  - CARDIO-RESPIRATORY ARREST [None]
  - OVERDOSE [None]
  - GENERAL PHYSICAL HEALTH DETERIORATION [None]
  - CEREBRAL HAEMORRHAGE [None]
  - DYSPHAGIA [None]
  - STARVATION [None]
  - SINUS TACHYCARDIA [None]
  - DISORIENTATION [None]
  - HYPOTENSION [None]
  - UNRESPONSIVE TO STIMULI [None]
  - HYPERTENSION [None]
  - DEPRESSED LEVEL OF CONSCIOUSNESS [None]
  - BRAIN INJURY [None]
  - MEDICATION ERROR [None]
  - BRADYCARDIA [None]
